FAERS Safety Report 6492859-1 (Version None)
Quarter: 2009Q4

REPORT INFORMATION
  Report Type: 
  Country: None (occurrence: None)
  Receive Date: 20091211
  Receipt Date: 20091211
  Transmission Date: 20100525
  Serious: Yes (Other)
  Sender: FDA-Public Use
  Company Number: None

PATIENT
  Sex: Male
  Weight: 60 kg

DRUGS (3)
  1. NORFLOX TZ [Suspect]
     Indication: DIARRHOEA
     Dosage: 1 1 PO
     Route: 048
     Dates: start: 20091205, end: 20091205
  2. TINIDAZOLE (TINDAMAX) [Suspect]
  3. NORFLOXACIN [Suspect]

REACTIONS (5)
  - GENITAL RASH [None]
  - HAEMORRHOIDS [None]
  - LIP SWELLING [None]
  - RASH [None]
  - SWELLING FACE [None]
